FAERS Safety Report 21369110 (Version 1)
Quarter: 2022Q3

REPORT INFORMATION
  Report Type: Spontaneous
  Country: US (occurrence: None)
  Receive Date: 20220923
  Receipt Date: 20220923
  Transmission Date: 20221026
  Serious: Yes (Hospitalization)
  Sender: FDA-Public Use
  Company Number: 2022A320814

PATIENT
  Sex: Female
  Weight: 60.3 kg

DRUGS (1)
  1. FASENRA [Suspect]
     Active Substance: BENRALIZUMAB
     Indication: Asthma
     Route: 058

REACTIONS (18)
  - Eosinophil count increased [Unknown]
  - Cough [Unknown]
  - Lung disorder [Unknown]
  - Feeling abnormal [Unknown]
  - Pain in extremity [Unknown]
  - Malaise [Unknown]
  - Arthritis [Unknown]
  - Multiple allergies [Unknown]
  - Dysphonia [Unknown]
  - Middle insomnia [Unknown]
  - Rales [Unknown]
  - Wheezing [Unknown]
  - Pyrexia [Unknown]
  - Inflammation [Unknown]
  - Product use issue [Unknown]
  - Drug dose omission by device [Unknown]
  - Syringe issue [Unknown]
  - Drug ineffective [Unknown]
